FAERS Safety Report 10553825 (Version 1)
Quarter: 2014Q4

REPORT INFORMATION
  Report Type: Spontaneous
  Country: US (occurrence: None)
  Receive Date: 20141028
  Receipt Date: 20141028
  Transmission Date: 20150529
  Serious: Yes (Death)
  Sender: FDA-Public Use
  Company Number: 2014100040

PATIENT
  Age: 21 Year
  Sex: Female

DRUGS (6)
  1. DOXYLAMINE (DOXYLAMINE) [Suspect]
     Active Substance: DOXYLAMINE
  2. DEXTROMETHORPHAN (DEXTROMETHORPHAN) [Suspect]
     Active Substance: DEXTROMETHORPHAN
  3. CARISOPRODOL. [Suspect]
     Active Substance: CARISOPRODOL
  4. MEPROBAMATE (MEPROBAMATE) [Suspect]
     Active Substance: MEPROBAMATE
  5. ORPHENADRINE (ORPHENADRINE) (ORPHENADRINE) [Suspect]
     Active Substance: ORPHENADRINE
  6. SUMATRIPTAN (SUMATRIPTAN) [Suspect]
     Active Substance: SUMATRIPTAN

REACTIONS (8)
  - Vomiting [None]
  - Toxicity to various agents [None]
  - Drug interaction [None]
  - Coronary artery occlusion [None]
  - Unresponsive to stimuli [None]
  - Pulmonary oedema [None]
  - Pulmonary congestion [None]
  - Accidental death [None]
